FAERS Safety Report 10012630 (Version 1)
Quarter: 2014Q1

REPORT INFORMATION
  Report Type: Spontaneous
  Country: FR (occurrence: FR)
  Receive Date: 20140314
  Receipt Date: 20140314
  Transmission Date: 20141002
  Serious: Yes (Other)
  Sender: FDA-Public Use
  Company Number: FR-ASTRAZENECA-2014SE16136

PATIENT
  Age: 36 Year
  Sex: Male

DRUGS (11)
  1. DIPRIVAN [Suspect]
     Route: 042
     Dates: start: 20140221, end: 20140222
  2. CLAMOXYL [Suspect]
     Indication: PNEUMONIA PNEUMOCOCCAL
     Route: 048
     Dates: start: 20140220
  3. VALIUM [Suspect]
     Route: 065
     Dates: start: 20140222
  4. AUGMENTIN [Suspect]
     Route: 048
     Dates: end: 20140220
  5. ROVAMYCINE [Suspect]
     Indication: PNEUMONIA PNEUMOCOCCAL
     Dosage: ONE DOSE, ONCE/SINGLE ADMINISTRATION
     Route: 048
     Dates: start: 20140220, end: 20140220
  6. TAMIFLU [Suspect]
     Indication: PNEUMONIA PNEUMOCOCCAL
     Dosage: ONE DOSE, ONCE/SINGLE ADMINISTRATION
     Route: 065
     Dates: start: 20140220, end: 20140220
  7. MIDAZOLAM [Suspect]
     Route: 042
     Dates: start: 20140220, end: 20140222
  8. SUFENTANIL [Suspect]
     Route: 042
     Dates: start: 20140220, end: 20140222
  9. NOZINAN [Suspect]
     Route: 065
     Dates: start: 20140221
  10. CATAPRESSAN [Suspect]
     Route: 065
     Dates: start: 20140221
  11. ATRACURIUM [Suspect]
     Route: 042
     Dates: start: 20140220, end: 20140221

REACTIONS (4)
  - Lipase increased [Unknown]
  - Pancreatic disorder [Unknown]
  - Pancreatitis [Unknown]
  - Therapy cessation [Unknown]
